FAERS Safety Report 7216166-4 (Version None)
Quarter: 2011Q1

REPORT INFORMATION
  Report Type: 
  Country: None (occurrence: None)
  Receive Date: 20110107
  Receipt Date: 20101227
  Transmission Date: 20110831
  Serious: Yes (Life-Threatening, Hospitalization)
  Sender: FDA-Public Use
  Company Number: DE-MYLANLABS-2009S1008582

PATIENT
  Age: 51 Year
  Sex: Female
  Weight: 92 kg

DRUGS (18)
  1. PREDNISOLONE [Interacting]
     Indication: HYPEREOSINOPHILIC SYNDROME
     Dosage: BEGINN DER THERAPIE HOCHDOSIERT MIT 100MG, DANN DOSISREDUKTION BIS AUF 30MG
     Route: 048
     Dates: start: 20080301
  2. PREDNISOLONE [Interacting]
  3. ROCALTROL [Concomitant]
     Indication: RENAL OSTEODYSTROPHY
     Route: 048
     Dates: start: 20080301
  4. CALCILAC KT [Concomitant]
     Indication: RENAL OSTEODYSTROPHY
     Route: 048
     Dates: start: 20080601
  5. ALDACTONE [Interacting]
     Indication: CARDIAC FAILURE
     Route: 048
     Dates: start: 20080501, end: 20080904
  6. ALDACTONE [Interacting]
     Route: 048
     Dates: start: 20080908
  7. PANTOZOL [Concomitant]
     Indication: PROPHYLAXIS AGAINST GASTROINTESTINAL ULCER
     Route: 048
     Dates: start: 20080201
  8. FLUTICASONE PROPIONATE W/SALMETEROL XINAFOATE [Concomitant]
     Indication: ASTHMA
     Dosage: DOSIERUNG UND APPLIKATIONSHAUFIGKEIT SIND UNBEKANNT
     Route: 055
     Dates: start: 20041001, end: 20050101
  9. TORSEMIDE [Interacting]
     Indication: CARDIAC FAILURE
     Dosage: DOSIS/APPLIKATION: 1X100MG + 1X20MG
     Route: 048
     Dates: start: 20080701, end: 20080903
  10. ALBUTEROL [Suspect]
     Indication: ASTHMA
     Dosage: APPLIKATIONSHAUFIGKEIT UND KONSEKUTIV DIE DOSIS PRO TAG SIND UNBEKANNT
     Route: 055
     Dates: start: 20080201
  11. ASPIRIN [Concomitant]
     Indication: ENDOCARDITIS FIBROPLASTICA
     Route: 048
     Dates: start: 20080301
  12. FALITHROM [Concomitant]
     Indication: THROMBOSIS PROPHYLAXIS
     Dosage: APPLIKATION NACH BEDARF
     Route: 048
     Dates: start: 20080301, end: 20080903
  13. TORSEMIDE [Interacting]
  14. AQUAPHOR [Interacting]
     Indication: CARDIAC FAILURE
     Route: 048
     Dates: start: 20080301, end: 20080903
  15. MAGNESIUM [Concomitant]
     Indication: PRODUCT USED FOR UNKNOWN INDICATION
     Dosage: APPLIKATION BEI BEDARF; DOSIERUNG IST NICHT BEKANNT
     Route: 048
     Dates: start: 20080601
  16. AQUAPHOR [Interacting]
     Dates: start: 20080912
  17. BISOPROLOL [Concomitant]
     Indication: CARDIAC FAILURE
     Route: 048
     Dates: start: 20080601
  18. SYMBICORT [Concomitant]
     Indication: ASTHMA
     Dosage: DOSIERUNG UND APPLIKATIONSHAUFIGKEIT SIND UNBEKANNT
     Route: 055
     Dates: start: 20080201, end: 20080501

REACTIONS (4)
  - DRUG INTERACTION [None]
  - BLOOD POTASSIUM DECREASED [None]
  - BLOOD SODIUM DECREASED [None]
  - METABOLIC ALKALOSIS [None]
